FAERS Safety Report 9642538 (Version 1)
Quarter: 2013Q4

REPORT INFORMATION
  Report Type: Spontaneous
  Country: US (occurrence: US)
  Receive Date: 20131024
  Receipt Date: 20131024
  Transmission Date: 20140711
  Serious: Yes (Other)
  Sender: FDA-Public Use
  Company Number: US-MYLANLABS-2013S1023211

PATIENT
  Age: 43 Year
  Sex: Female

DRUGS (3)
  1. TRAMADOL [Suspect]
     Route: 048
  2. VALPROIC ACID [Concomitant]
     Indication: BIPOLAR DISORDER
     Route: 065
  3. GABAPENTIN [Concomitant]
     Indication: BIPOLAR DISORDER
     Route: 065

REACTIONS (4)
  - Stupor [Unknown]
  - Dysarthria [Unknown]
  - Overdose [Unknown]
  - Drug screen false positive [Unknown]
